FAERS Safety Report 6264413-8 (Version None)
Quarter: 2009Q3

REPORT INFORMATION
  Report Type: 
  Country: None (occurrence: None)
  Receive Date: 20090710
  Receipt Date: 20090304
  Transmission Date: 20100115
  Serious: Yes (Hospitalization)
  Sender: FDA-Public Use
  Company Number: B0583010A

PATIENT
  Age: 53 Year
  Sex: Male
  Weight: 74 kg

DRUGS (4)
  1. OMACOR [Suspect]
     Dosage: 1000MG PER DAY
     Route: 048
     Dates: start: 20041126
  2. BETA BLOCKER [Concomitant]
  3. ACETYLSALICYLIC ACID SRT [Concomitant]
  4. STATINS [Concomitant]

REACTIONS (2)
  - GASTRITIS [None]
  - HELICOBACTER GASTRITIS [None]
